FAERS Safety Report 19670360 (Version 1)
Quarter: 2021Q3

REPORT INFORMATION
  Report Type: Spontaneous
  Country: US (occurrence: US)
  Receive Date: 20210806
  Receipt Date: 20210806
  Transmission Date: 20211014
  Serious: Yes (Hospitalization)
  Sender: FDA-Public Use
  Company Number: US-SAOL THERAPEUTICS-2020SAO00492

PATIENT
  Age: 17 Year
  Sex: Female

DRUGS (2)
  1. LIORESAL [Suspect]
     Active Substance: BACLOFEN
     Dosage: 500 ?G/ML, \DAY
     Route: 037
     Dates: end: 202011
  2. LIORESAL [Suspect]
     Active Substance: BACLOFEN
     Dosage: REDUCED PUMP DOSE
     Dates: start: 202011

REACTIONS (4)
  - Respiratory disorder [Recovered/Resolved]
  - Overdose [Recovered/Resolved]
  - Wrong technique in product usage process [Recovered/Resolved]
  - Unevaluable event [Recovered/Resolved]

NARRATIVE: CASE EVENT DATE: 20201109
